FAERS Safety Report 9787540 (Version 1)
Quarter: 2013Q4

REPORT INFORMATION
  Report Type: Spontaneous
  Country: US (occurrence: None)
  Receive Date: 20131224
  Receipt Date: 20131224
  Transmission Date: 20140711
  Serious: Yes (Hospitalization)
  Sender: FDA-Public Use
  Company Number: UTC-042091

PATIENT
  Age: 71 Year
  Sex: Female
  Weight: 68.6 kg

DRUGS (3)
  1. REMODULIN [Suspect]
     Indication: COR PULMONALE CHRONIC
     Dosage: 60.48 UG/KG (0.042 UG/KG, 1 IN 1 MIN), SUBCUTANEOUS
     Route: 058
     Dates: start: 20130930
  2. ADCIRCA (TADALAFIL) (UNKNOWN) [Concomitant]
  3. LATAIRIS (AMBRISENTAN) (UNKNOWN) [Concomitant]

REACTIONS (5)
  - Drug intolerance [None]
  - Diarrhoea [None]
  - Headache [None]
  - Nausea [None]
  - Vomiting [None]
